FAERS Safety Report 21365476 (Version 1)
Quarter: 2022Q3

REPORT INFORMATION
  Report Type: Spontaneous
  Country: FR (occurrence: FR)
  Receive Date: 20220922
  Receipt Date: 20220922
  Transmission Date: 20221027
  Serious: Yes (Other)
  Sender: FDA-Public Use
  Company Number: FR-NOVARTISPH-NVSC2020FR356085

PATIENT
  Age: 3 Year
  Sex: Male

DRUGS (4)
  1. RITUXIMAB [Suspect]
     Active Substance: RITUXIMAB
     Indication: Antiviral prophylaxis
     Dosage: 375 MG/M2 (TWO PULSES)
     Route: 065
  2. BASILIXIMAB [Suspect]
     Active Substance: BASILIXIMAB
     Indication: Prophylaxis against transplant rejection
     Dosage: UNK (INDUCTION THERAPY)
     Route: 065
  3. TACROLIMUS [Suspect]
     Active Substance: TACROLIMUS
     Indication: Prophylaxis against transplant rejection
     Dosage: UNK
     Route: 065
  4. AZATHIOPRINE [Suspect]
     Active Substance: AZATHIOPRINE
     Indication: Prophylaxis against transplant rejection
     Dosage: UNK
     Route: 065

REACTIONS (2)
  - Lymphopenia [Unknown]
  - Product use in unapproved indication [Unknown]
